FAERS Safety Report 16529333 (Version 4)
Quarter: 2019Q4

REPORT INFORMATION
  Report Type: Spontaneous
  Country: US (occurrence: US)
  Receive Date: 20190704
  Receipt Date: 20191205
  Transmission Date: 20200122
  Serious: No
  Sender: FDA-Public Use
  Company Number: US-GW PHARMA-201905USGW1329

PATIENT

DRUGS (9)
  1. EPIDIOLEX [Suspect]
     Active Substance: CANNABIDIOL
     Dosage: 0.96 MG/KG, 50 MILLIGRAM, BID (DRUG RESTARTED)
     Route: 048
     Dates: start: 201905, end: 2019
  2. EPIDIOLEX [Suspect]
     Active Substance: CANNABIDIOL
     Dosage: 2.396 MG/KG, 250 MILLIGRAM, QD (150 MG QAM AND 100 MG QHS)
     Route: 048
     Dates: start: 2019
  3. EPIDIOLEX [Suspect]
     Active Substance: CANNABIDIOL
     Indication: LENNOX-GASTAUT SYNDROME
     Dosage: 1.92 MG/KG, 100 MILLIGRAM, BID
     Route: 048
     Dates: start: 20190423, end: 2019
  4. FYCOMPA [Suspect]
     Active Substance: PERAMPANEL
     Indication: PRODUCT USED FOR UNKNOWN INDICATION
     Dosage: 4 MG, QD (AT BED TIME)
     Route: 048
     Dates: start: 20190529, end: 2019
  5. PHENOBARBITAL. [Concomitant]
     Active Substance: PHENOBARBITAL
     Indication: PRODUCT USED FOR UNKNOWN INDICATION
     Dosage: 150 MILLIGRAM, QD (1.5 TABLET, BED TIME)
     Route: 048
     Dates: start: 20190529
  6. EPIDIOLEX [Suspect]
     Active Substance: CANNABIDIOL
     Dosage: 1.92 MG/KG, 100 MILLIGRAM, BID
     Route: 048
     Dates: start: 2019, end: 2019
  7. CLONAZEPAM. [Concomitant]
     Active Substance: CLONAZEPAM
     Indication: PRODUCT USED FOR UNKNOWN INDICATION
     Dosage: 1 MILLIGRAM, TID
     Route: 048
     Dates: start: 20190529
  8. FYCOMPA [Suspect]
     Active Substance: PERAMPANEL
     Dosage: UNK
     Route: 048
     Dates: start: 2019
  9. OXCARBAZEPINE. [Concomitant]
     Active Substance: OXCARBAZEPINE
     Indication: PRODUCT USED FOR UNKNOWN INDICATION
     Dosage: 3000 MILLIGRAM, QD, (2 TABLET QAM, 3TABLET QPM)
     Route: 048
     Dates: start: 20190529

REACTIONS (4)
  - Muscle spasms [Unknown]
  - Depression [Recovered/Resolved]
  - Seizure [Not Recovered/Not Resolved]
  - Insomnia [Unknown]

NARRATIVE: CASE EVENT DATE: 20190503
